FAERS Safety Report 15178273 (Version 5)
Quarter: 2018Q4

REPORT INFORMATION
  Report Type: Spontaneous
  Country: ES (occurrence: ES)
  Receive Date: 20180721
  Receipt Date: 20181227
  Transmission Date: 20190204
  Serious: Yes (Life-Threatening, Hospitalization, Disabling, Other)
  Sender: FDA-Public Use
  Company Number: ES-SUN PHARMACEUTICAL INDUSTRIES LTD-2018R1-179069

PATIENT
  Age: 5 Year
  Sex: Female
  Weight: 16 kg

DRUGS (4)
  1. PARACETAMOL [Suspect]
     Active Substance: ACETAMINOPHEN
     Indication: PYREXIA
     Dosage: UNK UNK, PRN
     Route: 048
     Dates: start: 201504, end: 201505
  2. IBUPROFENO 20MG/ML SUSP ORAL [Suspect]
     Active Substance: IBUPROFEN
     Indication: PYREXIA
     Dosage: 5.5 ML, PRN
     Route: 048
     Dates: start: 20150407, end: 20150413
  3. IBUPROFENO 20MG/ML SUSP ORAL [Suspect]
     Active Substance: IBUPROFEN
     Indication: TONSILLITIS STREPTOCOCCAL
  4. PENILEVEL (BENZYLPENICILLIN SODIUM) [Suspect]
     Active Substance: PENICILLIN G SODIUM
     Indication: PHARYNGOTONSILLITIS
     Dosage: 250 MG, BID
     Route: 048
     Dates: start: 20150407, end: 20150417

REACTIONS (9)
  - Hypopyon [Recovering/Resolving]
  - Toxic epidermal necrolysis [Recovered/Resolved with Sequelae]
  - Open globe injury [Unknown]
  - Ectropion [Unknown]
  - Corneal disorder [Recovered/Resolved with Sequelae]
  - Ulcerative keratitis [Recovering/Resolving]
  - Eye disorder [Unknown]
  - Dry eye [Unknown]
  - Stevens-Johnson syndrome [Unknown]

NARRATIVE: CASE EVENT DATE: 20150502
